FAERS Safety Report 4695645-8 (Version None)
Quarter: 2005Q2

REPORT INFORMATION
  Report Type: 
  Country: None (occurrence: None)
  Receive Date: 20050608
  Receipt Date: 20050415
  Transmission Date: 20051028
  Serious: Yes (Life-Threatening, Hospitalization)
  Sender: FDA-Public Use
  Company Number: A03200501117

PATIENT
  Age: 30 Year
  Sex: Female

DRUGS (1)
  1. ELOXATIN [Suspect]
     Dosage: INTRAVENOUS NOS
     Route: 042

REACTIONS (3)
  - DIARRHOEA HAEMORRHAGIC [None]
  - HAEMORRHAGE [None]
  - NEUROPATHY [None]
